FAERS Safety Report 21472777 (Version 2)
Quarter: 2022Q4

REPORT INFORMATION
  Report Type: Other
  Country: AU (occurrence: None)
  Receive Date: 20221018
  Receipt Date: 20221021
  Transmission Date: 20230113
  Serious: No
  Sender: FDA-Public Use
  Company Number: AU-ROCHE-3198639

PATIENT
  Sex: Female

DRUGS (1)
  1. OCREVUS [Suspect]
     Active Substance: OCRELIZUMAB
     Indication: Multiple sclerosis
     Route: 042
     Dates: start: 20221011, end: 20221011

REACTIONS (4)
  - Fall [Unknown]
  - COVID-19 [Recovered/Resolved]
  - Tooth extraction [Recovered/Resolved]
  - White coat hypertension [Unknown]
